FAERS Safety Report 10790077 (Version 1)
Quarter: 2015Q1

REPORT INFORMATION
  Report Type: Spontaneous
  Country: US (occurrence: US)
  Receive Date: 20150212
  Receipt Date: 20150212
  Transmission Date: 20150721
  Serious: Yes (Hospitalization)
  Sender: FDA-Public Use
  Company Number: US-BAYER-2015-021766

PATIENT
  Age: 77 Year
  Sex: Male

DRUGS (2)
  1. ACETYLSALICYLIC ACID({=100 MG) [Suspect]
     Active Substance: ASPIRIN
  2. WARFARIN [Suspect]
     Active Substance: WARFARIN

REACTIONS (2)
  - Gastrointestinal polyp haemorrhage [None]
  - Gastric polyps [None]
